FAERS Safety Report 12495238 (Version 1)
Quarter: 2016Q2

REPORT INFORMATION
  Report Type: Spontaneous
  Country: US (occurrence: US)
  Receive Date: 20160624
  Receipt Date: 20160624
  Transmission Date: 20160815
  Serious: No
  Sender: FDA-Public Use
  Company Number: US-PFIZER INC-2016289730

PATIENT
  Age: 54 Year
  Sex: Male
  Weight: 181.44 kg

DRUGS (1)
  1. LYRICA [Suspect]
     Active Substance: PREGABALIN
     Indication: PARAESTHESIA
     Dosage: UNK (SMALL DOSE)

REACTIONS (2)
  - Arthropathy [Not Recovered/Not Resolved]
  - Pain [Unknown]
